FAERS Safety Report 12276846 (Version 1)
Quarter: 2016Q2

REPORT INFORMATION
  Report Type: Spontaneous
  Country: CN (occurrence: CN)
  Receive Date: 20160418
  Receipt Date: 20160418
  Transmission Date: 20160815
  Serious: Yes (Other)
  Sender: FDA-Public Use
  Company Number: CN-PFIZER INC-2016215433

PATIENT
  Age: 32 Year
  Sex: Female
  Weight: 55 kg

DRUGS (6)
  1. VFEND [Suspect]
     Active Substance: VORICONAZOLE
     Indication: UPPER RESPIRATORY TRACT INFECTION
     Dosage: 200 MG, 2X/DAY
     Route: 048
     Dates: start: 20150713, end: 20150809
  2. CRAVIT [Suspect]
     Active Substance: LEVOFLOXACIN
     Indication: ENTERITIS INFECTIOUS
     Dosage: 500 MG, 3X/DAY
     Route: 048
     Dates: start: 20150731, end: 20150810
  3. CILASTATIN SODIUM [Concomitant]
     Active Substance: CILASTATIN SODIUM
     Indication: UPPER RESPIRATORY TRACT INFECTION
     Dosage: UNK
     Dates: start: 20150713, end: 20150717
  4. CRAVIT [Suspect]
     Active Substance: LEVOFLOXACIN
     Indication: UPPER RESPIRATORY TRACT INFECTION
     Dosage: 500 MG, 3X/DAY
     Route: 041
     Dates: start: 20150709, end: 20150713
  5. ACICLOVIR [Concomitant]
     Active Substance: ACYCLOVIR
     Indication: VIRAL INFECTION
     Dosage: 200 MG, 3X/DAY
     Route: 048
     Dates: start: 20150730, end: 20150810
  6. IMIPENEM [Concomitant]
     Active Substance: IMIPENEM
     Indication: UPPER RESPIRATORY TRACT INFECTION
     Dosage: UNK
     Dates: start: 20150713, end: 20150717

REACTIONS (2)
  - Epilepsy [Recovering/Resolving]
  - Hepatic enzyme increased [Recovering/Resolving]

NARRATIVE: CASE EVENT DATE: 20150809
